FAERS Safety Report 23057429 (Version 1)
Quarter: 2023Q4

REPORT INFORMATION
  Report Type: Spontaneous
  Country: US (occurrence: US)
  Receive Date: 20231012
  Receipt Date: 20231012
  Transmission Date: 20240109
  Serious: No
  Sender: FDA-Public Use
  Company Number: US-009507513-2309USA007858

PATIENT
  Age: 58 Year
  Sex: Male

DRUGS (3)
  1. KEYTRUDA [Suspect]
     Active Substance: PEMBROLIZUMAB
     Indication: Keratinising squamous cell carcinoma of nasopharynx
     Dosage: EVERY 3 WEEKS.
     Route: 042
     Dates: start: 202209
  2. INLYTA [Suspect]
     Active Substance: AXITINIB
  3. ELIQUIS [Concomitant]
     Active Substance: APIXABAN

REACTIONS (2)
  - Glossitis [Unknown]
  - Rash [Unknown]

NARRATIVE: CASE EVENT DATE: 20221001
